FAERS Safety Report 5693770-6 (Version None)
Quarter: 2008Q2

REPORT INFORMATION
  Report Type: 
  Country: None (occurrence: None)
  Receive Date: 20080403
  Receipt Date: 20080325
  Transmission Date: 20081010
  Serious: Yes (Hospitalization)
  Sender: FDA-Public Use
  Company Number: US-JNJFOC-20080306504

PATIENT
  Age: 8 Year
  Sex: Male
  Weight: 29.48 kg

DRUGS (4)
  1. CONCERTA [Suspect]
     Route: 048
  2. CONCERTA [Suspect]
     Route: 048
  3. CONCERTA [Suspect]
     Indication: ATTENTION DEFICIT/HYPERACTIVITY DISORDER
     Route: 048
  4. CLONIDINE HCL [Concomitant]
     Indication: SLEEP DISORDER

REACTIONS (10)
  - ABDOMINAL PAIN [None]
  - ACTIVITIES OF DAILY LIVING IMPAIRED [None]
  - CARDIAC MURMUR [None]
  - DISTRACTIBILITY [None]
  - HEADACHE [None]
  - INFLUENZA [None]
  - MOOD SWINGS [None]
  - OBSESSIVE-COMPULSIVE PERSONALITY DISORDER [None]
  - RESTLESSNESS [None]
  - THERAPEUTIC RESPONSE DECREASED [None]
